FAERS Safety Report 11127337 (Version 2)
Quarter: 2015Q2

REPORT INFORMATION
  Report Type: Spontaneous
  Country: US (occurrence: None)
  Receive Date: 20150519
  Receipt Date: 20150527
  Transmission Date: 20150821
  Serious: Yes (Other)
  Sender: FDA-Public Use
  Company Number: 2015AKN00272

PATIENT
  Age: 17 Year
  Sex: Female
  Weight: 52.2 kg

DRUGS (4)
  1. MYORISAN [Suspect]
     Active Substance: ISOTRETINOIN
     Indication: ACNE CYSTIC
     Route: 048
     Dates: start: 20150501, end: 20150503
  2. WELLBUTRIN (IBUPROPION) [Concomitant]
  3. VYVANSE [Concomitant]
     Active Substance: LISDEXAMFETAMINE DIMESYLATE
  4. PREDNISONE. [Concomitant]
     Active Substance: PREDNISONE

REACTIONS (4)
  - Mood altered [None]
  - Vaginal haemorrhage [None]
  - Crying [None]
  - Menstruation irregular [None]

NARRATIVE: CASE EVENT DATE: 201505
